FAERS Safety Report 25021588 (Version 1)
Quarter: 2025Q1

REPORT INFORMATION
  Report Type: Spontaneous
  Country: US (occurrence: US)
  Receive Date: 20250228
  Receipt Date: 20250228
  Transmission Date: 20250408
  Serious: Yes (Hospitalization)
  Sender: CSL BEHRING
  Company Number: US-BEH-2025197071

PATIENT
  Sex: Male

DRUGS (3)
  1. HIZENTRA [Suspect]
     Active Substance: HUMAN IMMUNOGLOBULIN G
     Indication: Combined immunodeficiency
     Dosage: 1 G, QW(PRODUCT STRENGTH REPORTED AS 0.2GM/ML)
     Route: 058
     Dates: start: 202412
  2. HIZENTRA [Suspect]
     Active Substance: HUMAN IMMUNOGLOBULIN G
     Dosage: 4 G, QW(PRODUCT STRENGTH REPORTED AS 0.2GM/ML)
     Route: 058
     Dates: start: 202412
  3. EPINEPHRINE [Concomitant]
     Active Substance: EPINEPHRINE

REACTIONS (2)
  - Hospitalisation [Unknown]
  - Headache [Recovered/Resolved]
